FAERS Safety Report 6245080-6 (Version None)
Quarter: 2009Q2

REPORT INFORMATION
  Report Type: 
  Country: None (occurrence: None)
  Receive Date: 20090625
  Receipt Date: 20090617
  Transmission Date: 20091009
  Serious: Yes (Hospitalization)
  Sender: FDA-Public Use
  Company Number: HU-JNJFOC-20090606439

PATIENT
  Age: 70 Year
  Sex: Female

DRUGS (1)
  1. REMICADE [Suspect]
     Indication: PSORIASIS
     Dosage: 5 AMPULES
     Route: 042

REACTIONS (4)
  - CONFUSIONAL STATE [None]
  - FEELING ABNORMAL [None]
  - INFUSION RELATED REACTION [None]
  - VOMITING [None]
